FAERS Safety Report 5120520-4 (Version None)
Quarter: 2006Q4

REPORT INFORMATION
  Report Type: 
  Country: None (occurrence: None)
  Receive Date: 20061002
  Receipt Date: 20060918
  Transmission Date: 20070319
  Serious: Yes (Death)
  Sender: FDA-Public Use
  Company Number: MC200600449

PATIENT
  Age: 58 Year
  Sex: Female

DRUGS (5)
  1. ANGIOMAX [Suspect]
     Dosage: 51 MG, BOLUS, IV BOLUS; 419 MG, HR INTRAVENOUS
     Route: 040
     Dates: start: 20060301, end: 20060301
  2. ANGIOMAX [Suspect]
     Dosage: 51 MG, BOLUS, IV BOLUS; 419 MG, HR INTRAVENOUS
     Route: 040
     Dates: start: 20060301, end: 20060301
  3. ASPIRIN [Concomitant]
  4. CLOPIDOGREL [Concomitant]
  5. HEPARIN [Concomitant]

REACTIONS (3)
  - ACUTE MYOCARDIAL INFARCTION [None]
  - CARDIOGENIC SHOCK [None]
  - PROCEDURAL COMPLICATION [None]
